FAERS Safety Report 14119425 (Version 1)
Quarter: 2017Q4

REPORT INFORMATION
  Report Type: Spontaneous
  Country: US (occurrence: US)
  Receive Date: 20171024
  Receipt Date: 20171024
  Transmission Date: 20180321
  Serious: No
  Sender: FDA-Public Use
  Company Number: None

PATIENT
  Sex: Female
  Weight: 143.1 kg

DRUGS (6)
  1. METFORMIN 500MG TABLETS [Suspect]
     Active Substance: METFORMIN HYDROCHLORIDE
     Indication: POLYCYSTIC OVARIES
     Dosage: ?          QUANTITY:1 TABLET(S);?
     Route: 048
     Dates: start: 20150522
  2. METFORMIN 500MG TABLETS [Suspect]
     Active Substance: METFORMIN HYDROCHLORIDE
     Indication: DIABETES MELLITUS
     Dosage: ?          QUANTITY:1 TABLET(S);?
     Route: 048
     Dates: start: 20150522
  3. LISNOPRIL-HCTZ [Concomitant]
  4. GUMMY BAYER ASPIRIN [Concomitant]
  5. METFORMIN 500MG TABLETS [Suspect]
     Active Substance: METFORMIN HYDROCHLORIDE
     Indication: WEIGHT INCREASED
     Dosage: ?          QUANTITY:1 TABLET(S);?
     Route: 048
     Dates: start: 20150522
  6. VITAFUSION MULTIVITAMINS [Concomitant]

REACTIONS (11)
  - Arthralgia [None]
  - Chest discomfort [None]
  - Disturbance in attention [None]
  - Mouth swelling [None]
  - Fatigue [None]
  - Headache [None]
  - Dyspnoea [None]
  - Somnolence [None]
  - Therapy change [None]
  - Pruritus [None]
  - Rash [None]

NARRATIVE: CASE EVENT DATE: 20170907
